FAERS Safety Report 25716723 (Version 1)
Quarter: 2025Q3

REPORT INFORMATION
  Report Type: Spontaneous
  Country: BR (occurrence: BR)
  Receive Date: 20250822
  Receipt Date: 20250822
  Transmission Date: 20251021
  Serious: Yes (Hospitalization, Other)
  Sender: ABBVIE
  Company Number: BR-ABBVIE-6426890

PATIENT
  Age: 77 Year
  Sex: Female

DRUGS (1)
  1. VENCLEXTA [Suspect]
     Active Substance: VENETOCLAX
     Indication: Chronic lymphocytic leukaemia
     Route: 048

REACTIONS (7)
  - Gastroenteritis [Unknown]
  - Diarrhoea [Unknown]
  - Decreased appetite [Unknown]
  - Hepatic cyst [Unknown]
  - Abdominal pain [Unknown]
  - Cholecystectomy [Unknown]
  - Flatulence [Unknown]
